FAERS Safety Report 12721469 (Version 1)
Quarter: 2016Q3

REPORT INFORMATION
  Report Type: Other
  Country: US (occurrence: US)
  Receive Date: 20160907
  Receipt Date: 20160907
  Transmission Date: 20161109
  Serious: No
  Sender: FDA-Public Use
  Company Number: US-COL_21986_2016

PATIENT
  Sex: Male

DRUGS (4)
  1. COLGATE TOTAL ADVANCE WHITENING [Suspect]
     Active Substance: SODIUM FLUORIDE\TRICLOSAN
     Dosage: NOT MORE THAT A PEA OR PLUS SIZE/WEEKLY/
     Route: 048
  2. COLGATE TOTAL ADVANCED WHITENING [Suspect]
     Active Substance: SODIUM FLUORIDE\TRICLOSAN
     Indication: PRODUCT USED FOR UNKNOWN INDICATION
     Dosage: NOT MORE THAN A PEA OR PLUS/WEEKLY/
     Route: 048
  3. COLGATE TOTAL ADVANCED WHITENING [Suspect]
     Active Substance: SODIUM FLUORIDE\TRICLOSAN
     Dosage: NOT MORE THAN A PEA OR PLUS/BID/
     Route: 048
  4. COLGATE TOTAL ADVANCE WHITENING [Suspect]
     Active Substance: SODIUM FLUORIDE\TRICLOSAN
     Indication: PRODUCT USED FOR UNKNOWN INDICATION
     Dosage: NOT MORE THAT A PEA OR PLUS SIZE/BID/
     Route: 048

REACTIONS (1)
  - Tonsillar disorder [Recovering/Resolving]
